FAERS Safety Report 4774100-0 (Version None)
Quarter: 2005Q3

REPORT INFORMATION
  Report Type: 
  Country: None (occurrence: None)
  Receive Date: 20050914
  Receipt Date: 20050401
  Transmission Date: 20060218
  Serious: Yes (Other)
  Sender: FDA-Public Use
  Company Number: 163-20785-05040141

PATIENT

DRUGS (1)
  1. THALOMID [Suspect]
     Indication: NON-HODGKIN'S LYMPHOMA
     Dosage: 200MG QHS FOR 1-2 WEEKS, TITRATED UPWARD BY 100MG EVERY 1-2 WEEKS TO 800MG/D., ORAL
     Route: 048
     Dates: start: 20030701

REACTIONS (5)
  - DYSPNOEA [None]
  - FATIGUE [None]
  - HAEMOGLOBIN DECREASED [None]
  - OEDEMA [None]
  - PLEURAL EFFUSION [None]
